FAERS Safety Report 5954126-1 (Version None)
Quarter: 2008Q4

REPORT INFORMATION
  Report Type: 
  Country: None (occurrence: None)
  Receive Date: 20081113
  Receipt Date: 20081113
  Transmission Date: 20090506
  Serious: No
  Sender: FDA-Public Use
  Company Number: None

PATIENT
  Age: 70 Year
  Sex: Female
  Weight: 74.5 kg

DRUGS (3)
  1. XELODA [Suspect]
     Dosage: 1500MG BID 14D ON/7 OFF ORAL
     Route: 048
     Dates: start: 20071207, end: 20080202
  2. HERCEPTIN [Concomitant]
  3. PLANTAIN [Concomitant]

REACTIONS (3)
  - CONJUNCTIVAL DISORDER [None]
  - ERYTHEMA [None]
  - LACRIMATION INCREASED [None]
